FAERS Safety Report 13363241 (Version 3)
Quarter: 2017Q2

REPORT INFORMATION
  Report Type: Other
  Country: DK (occurrence: DK)
  Receive Date: 20170323
  Receipt Date: 20170425
  Transmission Date: 20170830
  Serious: Yes (Hospitalization, Other)
  Sender: FDA-Public Use
  Company Number: DK-CELLTRION INC.-2016DK005143

PATIENT

DRUGS (3)
  1. ^SANDOZ^ METHOTREXATE [Suspect]
     Active Substance: METHOTREXATE SODIUM
     Indication: RHEUMATOID ARTHRITIS
     Dosage: 15 MG, 1/WEEK
     Route: 048
     Dates: start: 20051219
  2. REMSIMA [Suspect]
     Active Substance: INFLIXIMAB
     Indication: RHEUMATOID ARTHRITIS
     Dosage: 300 MG, 6 WEEKS
     Route: 042
     Dates: start: 20151019, end: 20151019
  3. FOLIMET [Concomitant]
     Indication: PRODUCT USED FOR UNKNOWN INDICATION
     Dosage: UNK
     Route: 048
     Dates: start: 20051219

REACTIONS (5)
  - Transient ischaemic attack [Recovered/Resolved]
  - Product substitution issue [Unknown]
  - Polycythaemia [Recovered/Resolved]
  - Myeloproliferative neoplasm [Not Recovered/Not Resolved]
  - Hypertension [Recovered/Resolved]
